FAERS Safety Report 4342684-2 (Version None)
Quarter: 2004Q1

REPORT INFORMATION
  Report Type: 
  Country: None (occurrence: None)
  Receive Date: 20040213
  Receipt Date: 20031030
  Transmission Date: 20041129
  Serious: Yes (Other)
  Sender: FDA-Public Use
  Company Number: 350520

PATIENT
  Age: 37 Year
  Sex: Female

DRUGS (5)
  1. PEGASYS [Suspect]
     Indication: HEPATITIS C
     Dosage: SUBCUTANEOUS
     Route: 058
     Dates: start: 20030408
  2. COPEGUS [Suspect]
     Indication: HEPATITIS C
     Dosage: ORAL
     Route: 048
     Dates: start: 20030408
  3. VALIUM [Concomitant]
  4. LITHIUM (LITHIUM NOS) [Concomitant]
  5. OXYCODONE [Concomitant]

REACTIONS (7)
  - ALOPECIA [None]
  - ANXIETY [None]
  - HAEMOGLOBIN DECREASED [None]
  - HEADACHE [None]
  - VOMITING [None]
  - WEIGHT DECREASED [None]
  - WHITE BLOOD CELL COUNT DECREASED [None]
